FAERS Safety Report 17307025 (Version 1)
Quarter: 2020Q1

REPORT INFORMATION
  Report Type: Spontaneous
  Country: US (occurrence: US)
  Receive Date: 20200123
  Receipt Date: 20200123
  Transmission Date: 20200409
  Serious: No
  Sender: FDA-Public Use
  Company Number: US-FRESENIUS KABI-FK202000736

PATIENT

DRUGS (1)
  1. BIVALIRUDIN FOR INJECTION [Suspect]
     Active Substance: BIVALIRUDIN
     Indication: ANTICOAGULANT THERAPY
     Dosage: UNKNOWN
     Route: 065

REACTIONS (1)
  - Therapeutic product effect decreased [Unknown]
